FAERS Safety Report 9699291 (Version 1)
Quarter: 2013Q4

REPORT INFORMATION
  Report Type: Spontaneous
  Country: US (occurrence: US)
  Receive Date: 20131120
  Receipt Date: 20131120
  Transmission Date: 20140711
  Serious: No
  Sender: FDA-Public Use
  Company Number: US-GILEAD-2008-0015511

PATIENT
  Age: 50 Year
  Sex: Male
  Weight: 81.65 kg

DRUGS (7)
  1. LETAIRIS [Suspect]
     Indication: PULMONARY ARTERIAL HYPERTENSION
     Route: 048
     Dates: start: 20080117
  2. VENTAVIS [Concomitant]
     Indication: PULMONARY ARTERIAL HYPERTENSION
     Dosage: 6-9 X /DAY
     Route: 055
  3. REVATIO [Concomitant]
     Indication: PULMONARY ARTERIAL HYPERTENSION
     Route: 048
  4. COREG [Concomitant]
     Indication: CARDIAC FAILURE CONGESTIVE
     Route: 048
  5. DIGOXIN [Concomitant]
     Indication: ESSENTIAL HYPERTENSION
     Route: 048
  6. LASIX [Concomitant]
     Indication: ESSENTIAL HYPERTENSION
     Route: 048
  7. SPIRONOLACTONE [Concomitant]
     Indication: ESSENTIAL HYPERTENSION
     Route: 048

REACTIONS (1)
  - Flushing [Not Recovered/Not Resolved]
